FAERS Safety Report 6601778 (Version 1)
Quarter: 2020Q3

REPORT INFORMATION
  Report Type: Spontaneous
  Country: CR (occurrence: CR)
  Receive Date: 20080331
  Receipt Date: 20080331
  Transmission Date: 20201104
  Serious: Yes (Death)
  Sender: FDA-Public Use
  Company Number: CR-ROCHE-429748

PATIENT

DRUGS (2)
  1. MORPHINE [Suspect]
     Active Substance: MORPHINE
     Indication: PAIN
     Route: 065
     Dates: end: 200509
  2. IBANDRONIC ACID. [Suspect]
     Active Substance: IBANDRONIC ACID
     Dosage: VIALS.
     Route: 042
     Dates: start: 200506, end: 200509

REACTIONS (3)
  - Headache [Recovered/Resolved]
  - Disease progression [Fatal]
  - Myalgia [Recovered/Resolved]

NARRATIVE: CASE EVENT DATE: 20050701
